FAERS Safety Report 9306734 (Version 3)
Quarter: 2013Q4

REPORT INFORMATION
  Report Type: Spontaneous
  Country: DE (occurrence: DE)
  Receive Date: 20130523
  Receipt Date: 20131007
  Transmission Date: 20140711
  Serious: Yes (Hospitalization, Other)
  Sender: FDA-Public Use
  Company Number: DE-PFIZER INC-2013156547

PATIENT
  Age: 38 Year
  Sex: Female
  Weight: 75 kg

DRUGS (4)
  1. DOSTINEX [Suspect]
     Indication: OOCYTE DONOR
     Dosage: 0.5 MG, 1X/DAY (1 TABLET PER DAY)
     Route: 048
     Dates: start: 20130508, end: 20130513
  2. EXEMESTANE HEXAL [Suspect]
     Indication: OOCYTE DONOR
     Dosage: 25 MG, 3X/DAY
     Route: 048
     Dates: start: 20130508, end: 20130513
  3. CETROTIDE ^SERONO^ [Suspect]
     Indication: OOCYTE DONOR
     Dosage: 3 MG / 3 ML
     Route: 058
     Dates: start: 20130508, end: 20130513
  4. THYRONAJOD [Concomitant]
     Indication: THYMECTOMY
     Dosage: 50 UG, UNK
     Route: 048
     Dates: start: 2009

REACTIONS (9)
  - Abdominal pain lower [Recovered/Resolved]
  - Ascites [Recovered/Resolved]
  - Dizziness [Recovered/Resolved]
  - Dyspnoea [Recovered/Resolved]
  - Hypotension [Recovered/Resolved]
  - Constipation [Recovered/Resolved]
  - Lung disorder [Recovered/Resolved]
  - Dysstasia [Recovered/Resolved]
  - Off label use [Unknown]
